FAERS Safety Report 24935971 (Version 1)
Quarter: 2025Q1

REPORT INFORMATION
  Report Type: Report from Study
  Country: AE (occurrence: AE)
  Receive Date: 20250206
  Receipt Date: 20250206
  Transmission Date: 20250409
  Serious: Yes (Death, Other)
  Sender: EXELIXIS
  Company Number: AE-IPSEN Group, Research and Development-2024-20090

PATIENT
  Age: 61 Year
  Sex: Male

DRUGS (1)
  1. CABOMETYX [Suspect]
     Active Substance: CABOZANTINIB S-MALATE
     Indication: Hepatocellular carcinoma
     Dosage: 60 MG, QD
     Route: 048
     Dates: start: 202405, end: 202407

REACTIONS (1)
  - Malignant neoplasm progression [Fatal]
